FAERS Safety Report 20322729 (Version 1)
Quarter: 2022Q1

REPORT INFORMATION
  Report Type: Spontaneous
  Country: US (occurrence: US)
  Receive Date: 20220111
  Receipt Date: 20220111
  Transmission Date: 20220423
  Serious: No
  Sender: FDA-Public Use
  Company Number: US-PFIZER INC-202101787971

PATIENT
  Sex: Female

DRUGS (1)
  1. LORAZEPAM [Suspect]
     Active Substance: LORAZEPAM
     Dosage: 2 MG

REACTIONS (4)
  - Abdominal rigidity [Unknown]
  - Illness [Recovered/Resolved]
  - Pain [Unknown]
  - Hypersensitivity [Unknown]
